FAERS Safety Report 25544496 (Version 1)
Quarter: 2025Q3

REPORT INFORMATION
  Report Type: Spontaneous
  Country: CN (occurrence: CN)
  Receive Date: 20250711
  Receipt Date: 20250711
  Transmission Date: 20251020
  Serious: Yes (Other)
  Sender: BAYER HEALTHCARE PHARMACEUTICALS INC.
  Company Number: CN-BAYER-2025A091325

PATIENT
  Age: 46 Year
  Sex: Male
  Weight: 61.5 kg

DRUGS (1)
  1. AVELOX [Suspect]
     Active Substance: MOXIFLOXACIN HYDROCHLORIDE
     Indication: Pneumonia
     Dosage: 0.4 G, QD
     Route: 041
     Dates: start: 20250704, end: 20250704

REACTIONS (4)
  - Unresponsive to stimuli [Recovering/Resolving]
  - Speech disorder [Recovering/Resolving]
  - Pruritus [Recovering/Resolving]
  - Dyskinesia [None]

NARRATIVE: CASE EVENT DATE: 20250704
